FAERS Safety Report 10635607 (Version 1)
Quarter: 2014Q4

REPORT INFORMATION
  Report Type: Spontaneous
  Country: FR (occurrence: FR)
  Receive Date: 20141205
  Receipt Date: 20141205
  Transmission Date: 20150529
  Serious: Yes (Hospitalization)
  Sender: FDA-Public Use
  Company Number: FR-ALLERGAN-1424561US

PATIENT
  Age: 86 Year
  Sex: Female

DRUGS (8)
  1. SERESTA [Suspect]
     Active Substance: OXAZEPAM
     Dosage: 40 MG, QD
     Route: 048
  2. GANFORT EYE DROPS, SOLUTION [Suspect]
     Active Substance: BIMATOPROST\TIMOLOL MALEATE
     Indication: PRODUCT USED FOR UNKNOWN INDICATION
     Dosage: 300MG/ML+5MG/ML QD
     Route: 047
     Dates: end: 20141114
  3. TRANSIPEG [Suspect]
     Active Substance: POLYETHYLENE GLYCOL 3350
     Dosage: 11.8 G, QD
     Dates: end: 20141114
  4. PARACETAMOL [Suspect]
     Active Substance: ACETAMINOPHEN
     Dosage: 1 G, TID
     Dates: end: 20141114
  5. TERCIAN [Suspect]
     Active Substance: CYAMEMAZINE
     Dosage: 3 GTT, UNK
  6. TERALHITE [Suspect]
     Active Substance: LITHIUM CARBONATE
     Dosage: 250 MG, UNK
     Dates: end: 20141114
  7. SEROPLEX [Suspect]
     Active Substance: ESCITALOPRAM OXALATE
     Dosage: 0.5 MG, QD
  8. TERCIAN [Suspect]
     Active Substance: CYAMEMAZINE
     Dosage: 5 GTT, TID
     Dates: start: 20141107

REACTIONS (6)
  - Blood parathyroid hormone increased [Not Recovered/Not Resolved]
  - Hallucination, visual [Unknown]
  - Hypercalcaemia [Not Recovered/Not Resolved]
  - Vomiting [Unknown]
  - Electrocardiogram abnormal [Not Recovered/Not Resolved]
  - Blood phosphorus decreased [Not Recovered/Not Resolved]
